FAERS Safety Report 9745125 (Version 1)
Quarter: 2013Q4

REPORT INFORMATION
  Report Type: Report from Study
  Country: US (occurrence: US)
  Receive Date: 20131211
  Receipt Date: 20131211
  Transmission Date: 20140711
  Serious: Yes (Disabling)
  Sender: FDA-Public Use
  Company Number: US-ROCHE-1314371

PATIENT
  Sex: Male

DRUGS (4)
  1. LUCENTIS [Suspect]
     Indication: RETINAL HAEMORRHAGE
     Route: 065
  2. HYZAAR (UNITED STATES) [Concomitant]
     Dosage: 100-25
     Route: 065
  3. FOLIC ACID [Concomitant]
     Dosage: 600
     Route: 065
  4. TOPROL [Concomitant]
     Route: 065

REACTIONS (2)
  - Blindness [Unknown]
  - Retinal vein thrombosis [Unknown]
